FAERS Safety Report 22250454 (Version 4)
Quarter: 2023Q2

REPORT INFORMATION
  Report Type: Report from Study
  Country: BR (occurrence: BR)
  Receive Date: 20230425
  Receipt Date: 20230509
  Transmission Date: 20230722
  Serious: Yes (Hospitalization)
  Sender: FDA-Public Use
  Company Number: BR-JNJFOC-20230404322

PATIENT
  Age: 58 Year
  Sex: Male
  Weight: 72 kg

DRUGS (10)
  1. DARATUMUMAB [Suspect]
     Active Substance: DARATUMUMAB
     Indication: Plasma cell myeloma
     Dosage: 15ML
     Route: 058
     Dates: start: 20220901, end: 20230413
  2. LOSARTAN [Concomitant]
     Active Substance: LOSARTAN
     Indication: Hypertension
     Route: 048
     Dates: start: 20150101
  3. ATORVASTATIN [Concomitant]
     Active Substance: ATORVASTATIN
     Indication: Dyslipidaemia
     Route: 048
     Dates: start: 20170101
  4. LEVOTHYROXINE [Concomitant]
     Active Substance: LEVOTHYROXINE
     Indication: Hypothyroidism
     Dosage: 25 (UNIT NOT PROVIDED)
     Route: 048
     Dates: start: 20200101
  5. OSCAL D [CALCIUM CARBONATE;COLECALCIFEROL] [Concomitant]
     Indication: Prophylaxis
     Route: 048
     Dates: start: 20210701
  6. TRIMETHOPRIM [Concomitant]
     Active Substance: TRIMETHOPRIM
     Indication: Infection prophylaxis
     Route: 048
     Dates: start: 20210701
  7. AMOXICILLIN\CLAVULANIC ACID [Concomitant]
     Active Substance: AMOXICILLIN\CLAVULANIC ACID
     Indication: Pyrexia
     Route: 048
     Dates: start: 20230208
  8. PANTOPRAZOLE [Concomitant]
     Active Substance: PANTOPRAZOLE
     Indication: Gastrointestinal disorder therapy
     Route: 048
     Dates: start: 20210701
  9. FILGRASTIM [Concomitant]
     Active Substance: FILGRASTIM
     Indication: Neutropenia
     Route: 058
     Dates: start: 20221214
  10. FILGRASTIM [Concomitant]
     Active Substance: FILGRASTIM
     Route: 058
     Dates: start: 20230209

REACTIONS (2)
  - Sinusitis [Recovering/Resolving]
  - Pneumonia [Recovering/Resolving]

NARRATIVE: CASE EVENT DATE: 20230403
